FAERS Safety Report 4900674-2 (Version None)
Quarter: 2006Q1

REPORT INFORMATION
  Report Type: 
  Country: None (occurrence: None)
  Receive Date: 20060203
  Receipt Date: 20060124
  Transmission Date: 20060701
  Serious: Yes (Hospitalization, Other)
  Sender: FDA-Public Use
  Company Number: JP-JNJFOC-20060104120

PATIENT
  Age: 65 Year
  Sex: Male

DRUGS (5)
  1. DUROTEP [Suspect]
     Indication: CANCER PAIN
     Route: 062
  2. OXYCODONE HCL [Concomitant]
     Route: 048
  3. OXYCODONE HCL [Concomitant]
     Route: 048
  4. OXYCODONE HCL [Concomitant]
     Indication: CANCER PAIN
     Route: 048
  5. PAROXETINE HCL [Concomitant]

REACTIONS (2)
  - THERAPEUTIC RESPONSE DECREASED [None]
  - VOCAL CORD PARALYSIS [None]
